FAERS Safety Report 4808562-7 (Version None)
Quarter: 2005Q4

REPORT INFORMATION
  Report Type: 
  Country: None (occurrence: None)
  Receive Date: 20051025
  Receipt Date: 20051021
  Transmission Date: 20060501
  Serious: Yes (Hospitalization)
  Sender: FDA-Public Use
  Company Number: FRPFM-C-20050510

PATIENT
  Age: 66 Year
  Sex: Male

DRUGS (7)
  1. NAVELBINE [Suspect]
     Indication: MULTIPLE MYELOMA
     Route: 042
  2. FORTECORTIN [Suspect]
     Indication: MULTIPLE MYELOMA
     Dosage: 40MG PER DAY
     Route: 048
     Dates: start: 20001018, end: 20020117
  3. AREDIA [Concomitant]
     Dosage: 90MG PER DAY
     Dates: start: 20011226
  4. COZAAR [Concomitant]
     Dosage: 50MG PER DAY
     Dates: start: 20011113
  5. ALLOPURINOL [Concomitant]
     Dosage: 100MG PER DAY
     Dates: start: 20010701
  6. DIFFU-K [Concomitant]
     Dosage: 90MG PER DAY
     Route: 042
     Dates: start: 20011226
  7. LEXOMIL [Concomitant]
     Dosage: 6MG PER DAY
     Dates: start: 20001128

REACTIONS (3)
  - ACIDOSIS [None]
  - DIABETES MELLITUS [None]
  - GENERAL PHYSICAL HEALTH DETERIORATION [None]
